FAERS Safety Report 22005859 (Version 1)
Quarter: 2023Q1

REPORT INFORMATION
  Report Type: Spontaneous
  Country: TW (occurrence: TW)
  Receive Date: 20230217
  Receipt Date: 20230217
  Transmission Date: 20230418
  Serious: Yes (Hospitalization)
  Sender: FDA-Public Use
  Company Number: TW-002147023-NVSC2023TW036415

PATIENT
  Age: 52 Year
  Sex: Male

DRUGS (4)
  1. QUETIAPINE [Suspect]
     Active Substance: QUETIAPINE
     Indication: Delirium
     Dosage: UNK
     Route: 065
     Dates: start: 20200329, end: 20200402
  2. QUETIAPINE [Suspect]
     Active Substance: QUETIAPINE
     Dosage: UNK (HIGH DOSE)
     Route: 065
     Dates: start: 20200402, end: 20200409
  3. QUETIAPINE [Suspect]
     Active Substance: QUETIAPINE
     Dosage: UNK
     Route: 065
     Dates: start: 20200409, end: 20200422
  4. QUETIAPINE [Suspect]
     Active Substance: QUETIAPINE
     Dosage: UNK (TAPERED)
     Route: 065
     Dates: start: 20200422, end: 20200423

REACTIONS (2)
  - Hyponatraemia [Recovering/Resolving]
  - Product use in unapproved indication [Unknown]

NARRATIVE: CASE EVENT DATE: 20200410
